FAERS Safety Report 6157561-4 (Version None)
Quarter: 2009Q2

REPORT INFORMATION
  Report Type: 
  Country: None (occurrence: None)
  Receive Date: 20090414
  Receipt Date: 20090401
  Transmission Date: 20091009
  Serious: Yes (Other)
  Sender: FDA-Public Use
  Company Number: CERZ-1000587

PATIENT
  Age: 39 Year
  Sex: Male
  Weight: 84 kg

DRUGS (1)
  1. CEREZYME [Suspect]
     Indication: GAUCHER'S DISEASE
     Dosage: 2600 U, Q2W, INTRAVENOUS
     Route: 042
     Dates: start: 20010813

REACTIONS (2)
  - HEADACHE [None]
  - RIB FRACTURE [None]
